FAERS Safety Report 5676882-2 (Version None)
Quarter: 2008Q1

REPORT INFORMATION
  Report Type: 
  Country: None (occurrence: None)
  Receive Date: 20080324
  Receipt Date: 20080313
  Transmission Date: 20080703
  Serious: Yes (Hospitalization, Other)
  Sender: FDA-Public Use
  Company Number: US-MERCK-0705USA01592

PATIENT
  Age: 66 Year
  Sex: Female
  Weight: 62 kg

DRUGS (5)
  1. FOSAMAX [Suspect]
     Indication: OSTEOPOROSIS
     Route: 048
     Dates: start: 20000101
  2. FOSAMAX [Suspect]
     Route: 048
     Dates: start: 19990101
  3. FOSAMAX [Suspect]
     Route: 048
     Dates: start: 20011025
  4. FOSAMAX [Suspect]
     Route: 048
     Dates: start: 20020501, end: 20060101
  5. ACTONEL [Concomitant]
     Indication: OSTEOPOROSIS
     Route: 065
     Dates: start: 20030624, end: 20031006

REACTIONS (30)
  - ADVERSE EVENT [None]
  - BIPOLAR I DISORDER [None]
  - BONE PAIN [None]
  - CERVICAL CORD COMPRESSION [None]
  - CONSTIPATION [None]
  - CONTUSION [None]
  - DEEP VEIN THROMBOSIS [None]
  - FACIAL PAIN [None]
  - FALL [None]
  - FIBROMYALGIA [None]
  - GASTRIC DISORDER [None]
  - GINGIVAL DISORDER [None]
  - HEADACHE [None]
  - HYPERCALCAEMIA [None]
  - HYPERPARATHYROIDISM [None]
  - INJURY [None]
  - INTERVERTEBRAL DISC DEGENERATION [None]
  - JOINT SPRAIN [None]
  - NECK PAIN [None]
  - NEUROPATHY PERIPHERAL [None]
  - PAIN IN JAW [None]
  - PANCREATITIS [None]
  - PULMONARY GRANULOMA [None]
  - RENAL FAILURE ACUTE [None]
  - RESORPTION BONE INCREASED [None]
  - SARCOIDOSIS [None]
  - TEMPOROMANDIBULAR JOINT SYNDROME [None]
  - THROMBOSIS [None]
  - TOOTH LOSS [None]
  - UPPER RESPIRATORY TRACT INFECTION [None]
